FAERS Safety Report 7825474 (Version 2)
Quarter: 2013Q2

REPORT INFORMATION
  Report Type: Spontaneous
  Country: US (occurrence: None)
  Receive Date: 20101130
  Receipt Date: 20121203
  Transmission Date: 20140414
  Serious: Yes (Hospitalization, Other)
  Sender: FDA-Public Use
  Company Number: 2009SP036859

PATIENT
  Age: 35 Year
  Sex: Female
  Weight: 104.33 kg

DRUGS (3)
  1. NUVARING [Suspect]
     Indication: CONTRACEPTION
     Dosage: QM; VAG
     Route: 067
     Dates: start: 20050720, end: 200711
  2. FAMOTIDINE [Concomitant]
  3. IBUPROFEN [Concomitant]

REACTIONS (16)
  - Chest pain [None]
  - Palpitations [None]
  - Pain in extremity [None]
  - Hypertension [None]
  - Dizziness [None]
  - THROMBOSIS [None]
  - PARAESTHESIA [None]
  - OTITIS MEDIA [None]
  - OTITIS EXTERNA [None]
  - DYSURIA [None]
  - BLOOD PRESSURE INCREASED [None]
  - HYPERSENSITIVITY [None]
  - PULMONARY EMBOLISM [None]
  - DEEP VEIN THROMBOSIS [None]
  - CELLULITIS [None]
  - Hypersensitivity [None]
